FAERS Safety Report 7038956-3 (Version None)
Quarter: 2010Q4

REPORT INFORMATION
  Report Type: 
  Country: None (occurrence: None)
  Receive Date: 20101012
  Receipt Date: 20100412
  Transmission Date: 20110411
  Serious: No
  Sender: FDA-Public Use
  Company Number: US-BAYER-201019170NA

PATIENT
  Sex: Female

DRUGS (3)
  1. MIRENA [Suspect]
     Indication: PRODUCT USED FOR UNKNOWN INDICATION
     Dosage: FREQUENCY: CONTINUOUS
     Route: 015
  2. CROHNS DISEASE MEDICATION NOS [Concomitant]
     Indication: CROHN'S DISEASE
     Route: 065
     Dates: start: 20100101
  3. CIMZIA [Concomitant]
     Indication: ANTIINFLAMMATORY THERAPY

REACTIONS (1)
  - VAGINAL HAEMORRHAGE [None]
